FAERS Safety Report 8056851-8 (Version None)
Quarter: 2012Q1

REPORT INFORMATION
  Report Type: 
  Country: None (occurrence: None)
  Receive Date: 20120119
  Receipt Date: 20120111
  Transmission Date: 20120608
  Serious: Yes (Other)
  Sender: FDA-Public Use
  Company Number: FR-TEVA-317731ISR

PATIENT
  Sex: Male

DRUGS (3)
  1. ZOLEDRON [Concomitant]
     Indication: SARCOMA
  2. METHOTREXATE [Suspect]
     Indication: SARCOMA
  3. VALPROIC ACID [Interacting]
     Indication: EPILEPSY

REACTIONS (2)
  - DRUG INTERACTION [None]
  - CONVULSION [None]
